FAERS Safety Report 6782012-6 (Version None)
Quarter: 2010Q2

REPORT INFORMATION
  Report Type: 
  Country: None (occurrence: None)
  Receive Date: 20100621
  Receipt Date: 20100609
  Transmission Date: 20101027
  Serious: Yes (Other)
  Sender: FDA-Public Use
  Company Number: A0865918A

PATIENT
  Age: 41 Year
  Sex: Female

DRUGS (2)
  1. EPZICOM [Suspect]
     Indication: ANTIRETROVIRAL THERAPY
     Dosage: 1TAB PER DAY
     Route: 048
  2. REYATAZ [Suspect]
     Indication: ANTIRETROVIRAL THERAPY
     Dosage: 400MGD PER DAY
     Route: 065

REACTIONS (2)
  - ABORTION SPONTANEOUS [None]
  - DRUG EXPOSURE DURING PREGNANCY [None]
